FAERS Safety Report 9822805 (Version 4)
Quarter: 2014Q2

REPORT INFORMATION
  Report Type: Report from Study
  Country: BE (occurrence: BE)
  Receive Date: 20140116
  Receipt Date: 20140516
  Transmission Date: 20141212
  Serious: Yes (Hospitalization, Disabling)
  Sender: FDA-Public Use
  Company Number: BE-BAYER-2014-003008

PATIENT
  Age: 62 Year
  Sex: Male
  Weight: 78 kg

DRUGS (14)
  1. SORAFENIB (RAF KINASE INHIBITOR) [Suspect]
     Indication: HEPATOCELLULAR CARCINOMA
     Dosage: 400 MG DAILY
     Route: 048
     Dates: start: 20130903, end: 20130909
  2. SORAFENIB (RAF KINASE INHIBITOR) [Suspect]
     Indication: HEPATOCELLULAR CARCINOMA
     Dosage: 800 MG DAILY
     Route: 048
     Dates: start: 20130910, end: 20131230
  3. SORAFENIB (RAF KINASE INHIBITOR) [Suspect]
     Indication: HEPATOCELLULAR CARCINOMA
     Dosage: 400 MG AT MORNING
     Route: 048
     Dates: start: 20131231, end: 20131231
  4. GADOXETIC ACID DISODIUM [Suspect]
     Indication: HEPATOCELLULAR CARCINOMA
     Dosage: 10 ML
     Route: 042
     Dates: start: 20130930, end: 20130930
  5. GLUCOSE [Concomitant]
     Indication: INFUSION
     Dosage: 1 L, DAILY
     Route: 042
     Dates: start: 20140101
  6. POTASSIUM [Concomitant]
     Indication: MINERAL SUPPLEMENTATION
     Dosage: 60 MEQ, DAILY
     Route: 042
     Dates: start: 20140101, end: 20140103
  7. POTASSIUM [Concomitant]
     Indication: MINERAL SUPPLEMENTATION
     Dosage: 20 MEQ, DAILY
     Route: 042
     Dates: start: 20140104, end: 20140129
  8. IMODIUM [Concomitant]
     Indication: DIARRHOEA
     Dosage: 2 MG, PRN
     Route: 048
     Dates: start: 20131029, end: 20140102
  9. ULTRA K [Concomitant]
     Indication: MINERAL SUPPLEMENTATION
     Dosage: 60 ML, PRN
     Route: 048
     Dates: start: 20140102, end: 20140104
  10. MAGNESIUM SULFATE [Concomitant]
     Indication: MINERAL SUPPLEMENTATION
     Dosage: 3 G, DAILY
     Route: 042
     Dates: start: 20140101, end: 20140101
  11. OMEPRAZOLE [Concomitant]
     Indication: PROPHYLAXIS
     Dosage: 20 MG DAILY
     Route: 048
     Dates: start: 20140110
  12. CLEXANE [Concomitant]
     Indication: PROPHYLAXIS
     Dosage: 40 MG DAILY
     Route: 058
     Dates: start: 20140128, end: 20140304
  13. ZYRTEC [Concomitant]
     Indication: PROPHYLAXIS
     Dosage: 10 MG DAILY
     Route: 048
     Dates: start: 20140128
  14. CLAMOXYL [Concomitant]
     Dosage: UNK
     Dates: start: 20140203, end: 20140211

REACTIONS (1)
  - Subcutaneous abscess [Recovering/Resolving]
